FAERS Safety Report 18305265 (Version 1)
Quarter: 2020Q3

REPORT INFORMATION
  Report Type: Spontaneous
  Country: US (occurrence: US)
  Receive Date: 20200923
  Receipt Date: 20200923
  Transmission Date: 20201103
  Serious: Yes (Hospitalization, Other)
  Sender: FDA-Public Use
  Company Number: US-SUNOVION-2020SUN002732

PATIENT
  Sex: Male

DRUGS (4)
  1. YUPELRI [Suspect]
     Active Substance: REVEFENACIN
     Dosage: MIXED WITH BROVANA
  2. YUPELRI [Suspect]
     Active Substance: REVEFENACIN
     Dosage: UNK
  3. BROVANA [Suspect]
     Active Substance: ARFORMOTEROL TARTRATE
     Dosage: UNK
     Route: 055
  4. BROVANA [Suspect]
     Active Substance: ARFORMOTEROL TARTRATE
     Dosage: MIXED WITH YUPELRI
     Route: 055

REACTIONS (5)
  - Pericardial effusion [Unknown]
  - Lung transplant [Unknown]
  - Off label use [Unknown]
  - Chest pain [Unknown]
  - Infection [Unknown]
